FAERS Safety Report 17229549 (Version 1)
Quarter: 2020Q1

REPORT INFORMATION
  Report Type: Spontaneous
  Country: US (occurrence: US)
  Receive Date: 20200102
  Receipt Date: 20200102
  Transmission Date: 20200409
  Serious: Yes (Other)
  Sender: FDA-Public Use
  Company Number: None

PATIENT
  Age: 43 Year
  Sex: Female

DRUGS (1)
  1. NATPARA (PARATHYROID HORMONE) [Suspect]
     Active Substance: PARATHYROID HORMONE
     Indication: HYPOPARATHYROIDISM
     Route: 058
     Dates: start: 20170920, end: 20191210

REACTIONS (10)
  - Depression [None]
  - Feeling abnormal [None]
  - Synaesthesia [None]
  - Dysarthria [None]
  - Tetany [None]
  - Fine motor skill dysfunction [None]
  - Recalled product administered [None]
  - Blood calcium decreased [None]
  - Anxiety [None]
  - Arrhythmia [None]

NARRATIVE: CASE EVENT DATE: 20191220
